FAERS Safety Report 17087106 (Version 1)
Quarter: 2019Q4

REPORT INFORMATION
  Report Type: Spontaneous
  Country: GB (occurrence: GB)
  Receive Date: 20191128
  Receipt Date: 20191128
  Transmission Date: 20200122
  Serious: Yes (Other)
  Sender: FDA-Public Use
  Company Number: GB-TEVA-2019-GB-1142397

PATIENT
  Age: 40 Year
  Sex: Male
  Weight: 78 kg

DRUGS (4)
  1. NAPROXEN. [Concomitant]
     Active Substance: NAPROXEN
     Indication: GOUT
     Dosage: 2 DOSAGE FORM
     Dates: start: 20181115, end: 20181213
  2. TAMSULOSIN [Suspect]
     Active Substance: TAMSULOSIN
     Dosage: 400 MICROGRAM
     Dates: start: 20190125
  3. OMEPRAZOLE. [Concomitant]
     Active Substance: OMEPRAZOLE
     Dosage: TAKE ONE TWICE DAILY FOR A WEEK THEN 1 ONCE DAILY.1 DOSAGE FORMS
     Dates: start: 20181122, end: 20181213
  4. OMEPRAZOLE. [Concomitant]
     Active Substance: OMEPRAZOLE
     Dosage: TAKE ONE TWICE DAILY FOR A WEEK THEN 1 ONCE DAILY.2 DOSAGE FORMS
     Dates: start: 20181115, end: 20181121

REACTIONS (2)
  - Rash [Recovered/Resolved]
  - Eye swelling [Unknown]

NARRATIVE: CASE EVENT DATE: 20190125
